FAERS Safety Report 24118168 (Version 1)
Quarter: 2024Q3

REPORT INFORMATION
  Report Type: Report from Study
  Country: US (occurrence: None)
  Receive Date: 20240722
  Receipt Date: 20240722
  Transmission Date: 20241017
  Serious: Yes (Other)
  Sender: ASTRAZENECA
  Company Number: 2022A214300

PATIENT
  Sex: Female

DRUGS (1)
  1. FASENRA [Suspect]
     Active Substance: BENRALIZUMAB
     Indication: Obstructive sleep apnoea syndrome
     Dosage: 30MG/ML EVERY FOUR WEEKS
     Route: 058

REACTIONS (1)
  - Pancreatic disorder [Unknown]
